FAERS Safety Report 8654195 (Version 2)
Quarter: 2013Q2

REPORT INFORMATION
  Report Type: Spontaneous
  Country: US (occurrence: None)
  Receive Date: 20120402
  Receipt Date: 20130118
  Transmission Date: 20140414
  Serious: Yes (Other)
  Sender: FDA-Public Use
  Company Number: A-US2011-57126

PATIENT
  Age: 53 Year
  Sex: Male
  Weight: 83 kg

DRUGS (12)
  1. TRACLEER [Suspect]
     Indication: PULMONARY ARTERIAL HYPERTENSION
     Dosage: 62.5 MG, BID, ORAL
     Route: 048
     Dates: start: 20110808, end: 20111115
  2. LORTAB [Concomitant]
  3. METOCLOPRAMIDE [Concomitant]
  4. LANSOPRAZOLE (LANSOPRAZOLE) [Concomitant]
  5. GABAPENTIN (GABAPENTIN) [Concomitant]
  6. NIFEDIPINE [Concomitant]
  7. FLUOXETINE [Concomitant]
  8. PENTOXIFILLINE (PENTOXIFYLLINE) [Concomitant]
  9. LOSARTAN POTASSIUM [Concomitant]
  10. ASPIRIN (ACETYLSALICYLIC ACID) [Concomitant]
  11. ALLEGRA [Concomitant]
  12. IBUPROFEN (IBUPROFEN) [Concomitant]

REACTIONS (4)
  - LIVER FUNCTION TEST ABNORMAL [None]
  - ASPARTATE AMINOTRANSFERASE INCREASED [None]
  - ALANINE AMINOTRANSFERASE INCREASED [None]
  - BLOOD ALKALINE PHOSPHATASE INCREASED [None]
